FAERS Safety Report 4986445-X (Version None)
Quarter: 2006Q2

REPORT INFORMATION
  Report Type: 
  Country: None (occurrence: None)
  Receive Date: 20060424
  Receipt Date: 20060410
  Transmission Date: 20061013
  Serious: Yes (Hospitalization)
  Sender: FDA-Public Use
  Company Number: B0420280A

PATIENT
  Age: 73 Year
  Sex: Female

DRUGS (5)
  1. AVANDIA [Suspect]
     Indication: DIABETES MELLITUS NON-INSULIN-DEPENDENT
     Dosage: 4 MG / PER DAY / ORAL
     Route: 048
  2. ISOSORBIDE MONONITRATE [Concomitant]
  3. HYZAAR [Concomitant]
  4. ACARBOSE [Concomitant]
  5. GLICLAZIDE [Concomitant]

REACTIONS (21)
  - ACUTE PULMONARY OEDEMA [None]
  - AORTIC CALCIFICATION [None]
  - AORTIC ELONGATION [None]
  - BLOOD GLUCOSE INCREASED [None]
  - BLOOD LACTIC ACID INCREASED [None]
  - BLOOD POTASSIUM DECREASED [None]
  - BLOOD PRESSURE SYSTOLIC INCREASED [None]
  - BLOOD SODIUM DECREASED [None]
  - CARDIOMEGALY [None]
  - CYANOSIS [None]
  - DISORIENTATION [None]
  - FATIGUE [None]
  - HYPERCAPNIA [None]
  - HYPOXIA [None]
  - INCREASED UPPER AIRWAY SECRETION [None]
  - LETHARGY [None]
  - OEDEMA PERIPHERAL [None]
  - PERICARDIAL EFFUSION [None]
  - PLEURAL EFFUSION [None]
  - RALES [None]
  - TACHYCARDIA [None]
